FAERS Safety Report 20863908 (Version 22)
Quarter: 2022Q3

REPORT INFORMATION
  Report Type: Report from Study
  Country: PL (occurrence: None)
  Receive Date: 20220523
  Receipt Date: 20220721
  Transmission Date: 20221026
  Serious: Yes (Life-Threatening, Hospitalization)
  Sender: FDA-Public Use
  Company Number: PL-Eisai Medical Research-EC-2022-115455

PATIENT
  Age: 61 Year
  Sex: Male
  Weight: 71 kg

DRUGS (20)
  1. LENVATINIB [Suspect]
     Active Substance: LENVATINIB
     Indication: Squamous cell carcinoma of head and neck
     Route: 048
     Dates: start: 20220405, end: 20220518
  2. PEMBROLIZUMAB [Suspect]
     Active Substance: PEMBROLIZUMAB
     Indication: Squamous cell carcinoma of head and neck
     Route: 041
     Dates: start: 20220405, end: 20220517
  3. PEMBROLIZUMAB [Suspect]
     Active Substance: PEMBROLIZUMAB
     Route: 041
     Dates: start: 20220608, end: 20220608
  4. PEMBROLIZUMAB [Suspect]
     Active Substance: PEMBROLIZUMAB
     Route: 041
     Dates: start: 20220628, end: 20220628
  5. DALFAZ UNO [Concomitant]
     Dates: start: 201001
  6. GLUCOPHAGE [Concomitant]
     Active Substance: METFORMIN HYDROCHLORIDE
     Dates: start: 201001
  7. SIMVASTATIN [Concomitant]
     Active Substance: SIMVASTATIN
     Dates: start: 201001
  8. ALLOPURINOL [Concomitant]
     Active Substance: ALLOPURINOL
     Dates: start: 201001
  9. PANCRELIPASE [Concomitant]
     Active Substance: PANCRELIPASE
     Dates: start: 201001
  10. PANTOPRAZOLE SODIUM [Concomitant]
     Active Substance: PANTOPRAZOLE SODIUM
     Dates: start: 20220323
  11. PAROXETINE HYDROCHLORIDE [Concomitant]
     Active Substance: PAROXETINE HYDROCHLORIDE
     Dates: start: 20220328
  12. RISPERIDONE [Concomitant]
     Active Substance: RISPERIDONE
     Dates: start: 20220328
  13. LYRICA [Concomitant]
     Active Substance: PREGABALIN
     Dates: start: 20220405
  14. LAKCID [LACTOBACILLUS ACIDOPHILUS] [Concomitant]
     Dates: start: 20220405
  15. MELODYN [BUPRENORPHINE] [Concomitant]
     Dates: start: 20220405
  16. MORPHINE [Concomitant]
     Active Substance: MORPHINE
     Dates: start: 20220405
  17. PECFENT [Concomitant]
     Active Substance: FENTANYL CITRATE
     Dates: start: 20220405
  18. GLICLAZIDE [Concomitant]
     Active Substance: GLICLAZIDE
     Dates: start: 201001
  19. BISOPROLOL [Concomitant]
     Active Substance: BISOPROLOL
     Dates: start: 201001
  20. ASPIRIN [Concomitant]
     Active Substance: ASPIRIN
     Dates: start: 201001

REACTIONS (4)
  - General physical health deterioration [Recovered/Resolved with Sequelae]
  - Arterial haemorrhage [Recovered/Resolved with Sequelae]
  - Pneumonia [Recovered/Resolved]
  - Tumour pain [Recovered/Resolved with Sequelae]

NARRATIVE: CASE EVENT DATE: 20220517
